FAERS Safety Report 16099615 (Version 1)
Quarter: 2019Q1

REPORT INFORMATION
  Report Type: Spontaneous
  Country: US (occurrence: US)
  Receive Date: 20190320
  Receipt Date: 20190320
  Transmission Date: 20190418
  Serious: Yes (Other)
  Sender: FDA-Public Use
  Company Number: None

PATIENT
  Age: 73 Year
  Sex: Male

DRUGS (1)
  1. SKINPROV [Suspect]
     Active Substance: HOMEOPATHICS
     Indication: MELANOCYTIC NAEVUS
     Route: 003

REACTIONS (6)
  - Scar [None]
  - Chemical burn [None]
  - Malignant melanoma [None]
  - Product formulation issue [None]
  - Product use complaint [None]
  - Skin hyperpigmentation [None]

NARRATIVE: CASE EVENT DATE: 20190319
